FAERS Safety Report 6896928-3 (Version None)
Quarter: 2010Q3

REPORT INFORMATION
  Report Type: 
  Country: None (occurrence: None)
  Receive Date: 20100729
  Receipt Date: 20100723
  Transmission Date: 20110219
  Serious: Yes (Other)
  Sender: FDA-Public Use
  Company Number: URSO-2010-039

PATIENT
  Age: 46 Year
  Sex: Female

DRUGS (59)
  1. URSODIOL [Suspect]
     Indication: HEPATITIS C
     Dosage: 600MG QD ORAL
     Route: 048
     Dates: start: 20080314
  2. PROTECADIN (LAFUTIDINE) [Concomitant]
  3. CLARITHROMYCIN [Concomitant]
  4. AMOXICILLIN [Concomitant]
  5. PARIET (SODIUM RABEPRAZOLE) [Concomitant]
  6. ISOTONIC SODIUM CHLORIDE SOLUTION (ISOTONIC SODIUM CHLORIDE SOLUTION) [Concomitant]
  7. DIAGNOGREEN (INDOCYANINE GREEN) [Concomitant]
  8. LAXOBERON (SODIUM PICOSULFATE) [Concomitant]
  9. LAC-B (BIFIDOBACTERIUM) [Concomitant]
  10. NIFLEC (SODIUM_POTASSIUM COMBINED DRUG) [Concomitant]
  11. HEPARIN NA LOCK (HEPARIN SODIUM) [Concomitant]
  12. CEFAMEZIN ALPHA (CEFAZOLIN SODIUM) [Concomitant]
  13. LACTEC (LACTATED RINGERS SOLUTION) [Concomitant]
  14. RINDERON-V (BETAMETHASONE VALERATE) [Concomitant]
  15. BILISCOPIN DIC50 (IOTROXATE MEGLUMINE) [Concomitant]
  16. ISODINE (POVIDONE IODINE) [Concomitant]
  17. ISODINE [Concomitant]
  18. ZOLPIDEM TARTRATE [Concomitant]
  19. PURSENNID (SENNOSIDE) [Concomitant]
  20. MAGCOROL P (MAGNESIUM CITRATE) [Concomitant]
  21. GLYCERIN (GLYCERIN) [Concomitant]
  22. VITAMEDIN (THIAMINE MONOPHOSPHATE DISULFIDE B) [Concomitant]
  23. FAMOTIDINE [Concomitant]
  24. DEXTROSE 5% [Concomitant]
  25. ALINAMIN-F (FURSULTIAMINE HYDROCHLORIDE) [Concomitant]
  26. POTACOL-R (LACTATED RINGER'S SOLUTION:MALT) [Concomitant]
  27. CAPROCIN (HEPARIN CALCIUM) [Concomitant]
  28. ATARAX [Concomitant]
  29. PENTAZOCINE LACTATE [Concomitant]
  30. NEO-MINOPHAGEN C (GLYCYRRHIZIN_GLYCINE_CYSTEINE COMBINED DRUG) [Concomitant]
  31. SOLDACTONE (POTASSIUM CANRENOATE) [Concomitant]
  32. PANTOL (PANTHENOL) [Concomitant]
  33. ONOACT (LANDIOLOL HYDROCHLORIDE) [Concomitant]
  34. NICARDIPINE HYDROCHLORIDE [Concomitant]
  35. HUMULIN R (INSULIN HUMAN (GENETICAL RECOMBINATION)) [Concomitant]
  36. PHYSIO 35 (MAINTENANCE MEDIUM (WITH GLUCOSE)) [Concomitant]
  37. AKINETON [Concomitant]
  38. HALOPERIDOL [Concomitant]
  39. DIAZEPAM [Concomitant]
  40. ASPIRIN [Concomitant]
  41. LOXONIN (LOXOPROFEN SODIUM) [Concomitant]
  42. WARFARIN (WARFARIN POTASSIUM) [Concomitant]
  43. ORGARAN [Concomitant]
  44. NONTHRON (HUMAN ANTITHROMBIN 3 CONCENTRATED) [Concomitant]
  45. HEPAFLUSH (HEPARIN SODIUM) [Concomitant]
  46. FESIN (FERRIC OXIDE.SACCHARATED) [Concomitant]
  47. LEVOFLOXACIN [Concomitant]
  48. PL (NON-PYRINE COLD PREPARATION) [Concomitant]
  49. VERAPAMIL HYDROCHLORIDE [Concomitant]
  50. AMOBAN (ZOPICLONE) [Concomitant]
  51. RIZE (CLOTIAZEPAM) [Concomitant]
  52. TAMBOCOR (FLECAINIDE ACETATE) [Concomitant]
  53. LEXOTAN (BROMAZEPAM) [Concomitant]
  54. KETOPROFEN [Concomitant]
  55. SUNRYTHM (PILSICAINIDE HYDROCHLORIDE) [Concomitant]
  56. NOVO HEPARIN (HEPARIN SODIUM) [Concomitant]
  57. SOLDEM 1 (INITIATION MEDIUM) [Concomitant]
  58. VEEN-F (ACETATED RINGER) [Concomitant]
  59. POTASSIUM CHLORIDE [Concomitant]

REACTIONS (4)
  - ASTHMA [None]
  - ATRIAL FIBRILLATION [None]
  - PORTAL VEIN THROMBOSIS [None]
  - SPLENIC VEIN THROMBOSIS [None]
